FAERS Safety Report 12607606 (Version 2)
Quarter: 2016Q3

REPORT INFORMATION
  Report Type: Report from Study
  Country: US (occurrence: US)
  Receive Date: 20160729
  Receipt Date: 20160804
  Transmission Date: 20161109
  Serious: Yes (Other)
  Sender: FDA-Public Use
  Company Number: US-JNJFOC-20160121486

PATIENT
  Sex: Male

DRUGS (18)
  1. DIOVAN [Concomitant]
     Active Substance: VALSARTAN
  2. KENALOG [Concomitant]
     Active Substance: TRIAMCINOLONE ACETONIDE
  3. AMLODIPINE [Concomitant]
     Active Substance: AMLODIPINE BESYLATE
  4. VITAMIN D3 [Concomitant]
     Active Substance: CHOLECALCIFEROL
  5. SALMO SALAR OIL [Concomitant]
  6. IMBRUVICA [Suspect]
     Active Substance: IBRUTINIB
     Indication: MANTLE CELL LYMPHOMA
     Route: 048
     Dates: start: 20160113
  7. CYANOCOBALAMIN. [Concomitant]
     Active Substance: CYANOCOBALAMIN
  8. VITAMIN C [Concomitant]
     Active Substance: ASCORBIC ACID
  9. MAGNESIUM [Concomitant]
     Active Substance: MAGNESIUM
  10. IMBRUVICA [Suspect]
     Active Substance: IBRUTINIB
     Indication: B-CELL LYMPHOMA
     Route: 048
     Dates: start: 20160113
  11. IMBRUVICA [Suspect]
     Active Substance: IBRUTINIB
     Indication: B-CELL LYMPHOMA
     Route: 048
     Dates: start: 20160630
  12. POTASSIUM [Concomitant]
     Active Substance: POTASSIUM
  13. ALLOPURINOL. [Concomitant]
     Active Substance: ALLOPURINOL
  14. ASPIRIN. [Concomitant]
     Active Substance: ASPIRIN
  15. IMBRUVICA [Suspect]
     Active Substance: IBRUTINIB
     Indication: MANTLE CELL LYMPHOMA
     Route: 048
     Dates: start: 20160630
  16. BYSTOLIC [Concomitant]
     Active Substance: NEBIVOLOL HYDROCHLORIDE
  17. EPIVIR [Concomitant]
     Active Substance: LAMIVUDINE
  18. XANAX [Concomitant]
     Active Substance: ALPRAZOLAM

REACTIONS (9)
  - Asthenia [Unknown]
  - Dry skin [Unknown]
  - Muscle spasms [Not Recovered/Not Resolved]
  - Skin discolouration [Unknown]
  - Fatigue [Unknown]
  - Tongue discolouration [Recovered/Resolved]
  - Pleural effusion [Unknown]
  - Heart rate irregular [Not Recovered/Not Resolved]
  - Angina bullosa haemorrhagica [Recovering/Resolving]

NARRATIVE: CASE EVENT DATE: 2016
